FAERS Safety Report 8241790-X (Version None)
Quarter: 2012Q1

REPORT INFORMATION
  Report Type: 
  Country: None (occurrence: None)
  Receive Date: 20120328
  Receipt Date: 20120319
  Transmission Date: 20120608
  Serious: Yes (Hospitalization, Other)
  Sender: FDA-Public Use
  Company Number: US-RB-038404-12

PATIENT
  Sex: Female

DRUGS (3)
  1. SUBOXONE [Suspect]
     Indication: DRUG DEPENDENCE
     Route: 060
     Dates: start: 20120301
  2. SUBOXONE [Suspect]
     Dosage: MEDICAL TAPER
     Route: 060
     Dates: end: 20120301
  3. SUBOXONE [Suspect]
     Route: 060
     Dates: start: 20101122

REACTIONS (6)
  - PAIN [None]
  - WRONG TECHNIQUE IN DRUG USAGE PROCESS [None]
  - BONE NEOPLASM [None]
  - GUILLAIN-BARRE SYNDROME [None]
  - LUNG NEOPLASM [None]
  - LYMPHADENOPATHY [None]
